FAERS Safety Report 16794361 (Version 1)
Quarter: 2019Q3

REPORT INFORMATION
  Report Type: Spontaneous
  Country: UG (occurrence: UG)
  Receive Date: 20190719
  Receipt Date: 20190719
  Transmission Date: 20191005
  Serious: No
  Sender: FDA-Public Use
  Company Number: None

PATIENT
  Age: 58 Year
  Sex: Male
  Weight: 109 kg

DRUGS (1)
  1. ERENUMAB-AOOE [Suspect]
     Active Substance: ERENUMAB-AOOE
     Indication: PAIN
     Route: 058
     Dates: start: 20190328, end: 20190517

REACTIONS (9)
  - Dizziness [None]
  - Suicidal ideation [None]
  - Depression [None]
  - Hot flush [None]
  - Headache [None]
  - Pyrexia [None]
  - Chills [None]
  - Feeling abnormal [None]
  - Sedation [None]

NARRATIVE: CASE EVENT DATE: 20190504
